FAERS Safety Report 6973139-4 (Version None)
Quarter: 2010Q3

REPORT INFORMATION
  Report Type: 
  Country: None (occurrence: None)
  Receive Date: 20100909
  Receipt Date: 20100830
  Transmission Date: 20110219
  Serious: Yes (Hospitalization, Other)
  Sender: FDA-Public Use
  Company Number: JP-ROCHE-615870

PATIENT
  Sex: Female
  Weight: 54 kg

DRUGS (22)
  1. AVASTIN [Suspect]
     Indication: COLON CANCER METASTATIC
     Route: 041
     Dates: start: 20081002, end: 20081002
  2. AVASTIN [Suspect]
     Route: 041
     Dates: start: 20090909, end: 20100614
  3. ELPLAT [Suspect]
     Indication: COLON CANCER METASTATIC
     Route: 041
     Dates: start: 20080819, end: 20080819
  4. ELPLAT [Suspect]
     Route: 041
     Dates: start: 20080909, end: 20080909
  5. ELPLAT [Suspect]
     Route: 041
     Dates: start: 20081002, end: 20081002
  6. FLUOROURACIL [Suspect]
     Indication: COLORECTAL CANCER METASTATIC
     Dosage: ROUTE: INTRAVENOUS BOLUS
     Route: 042
     Dates: start: 20080819, end: 20080820
  7. FLUOROURACIL CAP [Suspect]
     Dosage: ROUTE: INTRAVENOUS DRIP
     Route: 042
     Dates: start: 20080819, end: 20080821
  8. FLUOROURACIL [Suspect]
     Dosage: ROUTE: INTRAVENOUS BOLUS
     Route: 042
     Dates: start: 20080909, end: 20080910
  9. FLUOROURACIL [Suspect]
     Dosage: ROUTE: INTRAVENOUS DRIP
     Route: 042
     Dates: start: 20080909, end: 20080911
  10. FLUOROURACIL [Suspect]
     Dosage: ROUTE: INTRAVENOUS BOLUS
     Route: 042
     Dates: start: 20081002, end: 20081003
  11. FLUOROURACIL [Suspect]
     Dosage: ROUTE: INTRAVENOUS DRIP
     Route: 042
     Dates: start: 20081002, end: 20081004
  12. FLUOROURACIL [Suspect]
     Route: 042
     Dates: start: 20081218, end: 20081218
  13. FLUOROURACIL [Suspect]
     Dosage: ROUTE: INTRAVENOUS BOLUS
     Route: 042
     Dates: start: 20090909, end: 20100614
  14. LEUCOVORIN CALCIUM [Suspect]
     Indication: COLON CANCER METASTATIC
     Dosage: DRUG: LEVOFOLINATE CALCIUM
     Route: 041
     Dates: start: 20080819, end: 20080820
  15. LEUCOVORIN CALCIUM [Suspect]
     Route: 041
     Dates: start: 20080909, end: 20080910
  16. LEUCOVORIN CALCIUM [Suspect]
     Route: 041
     Dates: start: 20081002, end: 20081003
  17. LEUCOVORIN CALCIUM [Suspect]
     Route: 041
     Dates: start: 20081208, end: 20081208
  18. LEUCOVORIN CALCIUM [Suspect]
     Route: 041
     Dates: start: 20090909, end: 20100614
  19. LANSOPRAZOLE [Concomitant]
     Route: 048
     Dates: start: 20081215, end: 20081221
  20. XELODA [Concomitant]
     Route: 048
     Dates: start: 20090107, end: 20090121
  21. XELODA [Concomitant]
     Route: 048
     Dates: start: 20090209, end: 20090723
  22. PYDOXAL [Concomitant]
     Dates: start: 20090107

REACTIONS (5)
  - BLOOD PRESSURE INCREASED [None]
  - DECREASED APPETITE [None]
  - LEUKOENCEPHALOPATHY [None]
  - OVARIAN HAEMORRHAGE [None]
  - OVARIAN TORSION [None]
